FAERS Safety Report 6665284-8 (Version None)
Quarter: 2010Q1

REPORT INFORMATION
  Report Type: 
  Country: None (occurrence: None)
  Receive Date: 20100331
  Receipt Date: 20100226
  Transmission Date: 20100710
  Serious: Yes (Hospitalization)
  Sender: FDA-Public Use
  Company Number: RB-04103-2010

PATIENT
  Age: 43 Year
  Sex: Male
  Weight: 108.8 kg

DRUGS (2)
  1. MUCINEX [Suspect]
     Indication: UPPER RESPIRATORY TRACT INFECTION
     Dosage: ORAL
     Route: 048
     Dates: start: 20100121
  2. PLACEBO [Suspect]
     Indication: UPPER RESPIRATORY TRACT INFECTION
     Dosage: ORAL
     Route: 048
     Dates: start: 20100121

REACTIONS (2)
  - ENDOCARDITIS [None]
  - PLEURAL EFFUSION [None]
